FAERS Safety Report 19328325 (Version 1)
Quarter: 2021Q2

REPORT INFORMATION
  Report Type: Spontaneous
  Country: JP (occurrence: JP)
  Receive Date: 20210528
  Receipt Date: 20210528
  Transmission Date: 20210717
  Serious: Yes (Death)
  Sender: FDA-Public Use
  Company Number: JP-ASTRAZENECA-2021A465990

PATIENT
  Age: 84 Year
  Sex: Female

DRUGS (2)
  1. LOKELMA [Suspect]
     Active Substance: SODIUM ZIRCONIUM CYCLOSILICATE
     Indication: HYPERKALAEMIA
     Dosage: WHEN THE PATIENT THOUGHT SHE HAD EATEN TOO MANY FRUITS AND VEGETABLES.5.0G UNKNOWN
     Route: 048
     Dates: start: 20210420
  2. SPIRONOLACTONE. [Suspect]
     Active Substance: SPIRONOLACTONE
     Dosage: DOSE UNKNOWN
     Route: 048

REACTIONS (2)
  - Hyperkalaemia [Fatal]
  - Off label use [Unknown]

NARRATIVE: CASE EVENT DATE: 20210510
